FAERS Safety Report 8648974 (Version 2)
Quarter: 2012Q4

REPORT INFORMATION
  Report Type: 
  Country: JP (occurrence: JP)
  Receive Date: 20120704
  Receipt Date: 20121105
  Transmission Date: 20130627
  Serious: Yes (Life-Threatening, Hospitalization)
  Sender: FDA-Public Use
  Company Number: JP-AMGEN-JPNSP2012040102

PATIENT
  Age: 60 Year
  Sex: Male
  Weight: 76 kg

DRUGS (10)
  1. REGPARA [Suspect]
     Indication: HYPERPARATHYROIDISM SECONDARY
     Dosage: 25 mg, qd
     Route: 048
     Dates: start: 20120608, end: 20120613
  2. OLMETEC [Concomitant]
     Indication: HYPERTENSION
     Dosage: 20 mg, bid
     Route: 048
     Dates: start: 20100210
  3. CARDENALIN [Concomitant]
     Indication: HYPERTENSION
     Dosage: 2 mg, qd
     Route: 048
     Dates: start: 20100210
  4. ADALAT [Concomitant]
     Indication: HYPERTENSION
     Dosage: 20 mg, tid
     Route: 048
     Dates: start: 20100210
  5. ALOSITOL [Concomitant]
     Indication: HYPERURICAEMIA
     Dosage: 100 mg, qd
     Route: 048
     Dates: start: 20100210
  6. PERSANTIN-L [Concomitant]
     Dosage: 150 mg, bid
     Route: 048
     Dates: start: 20100407
  7. DIART [Concomitant]
     Indication: URINE OUTPUT
     Dosage: 60 mg, qd
     Route: 048
     Dates: start: 20110216
  8. EQUA [Concomitant]
     Indication: DIABETES MELLITUS
     Dosage: 50 mg, qd
     Route: 048
     Dates: start: 20111117
  9. SENNOSIDE [Concomitant]
     Dosage: UNK
     Route: 048
  10. LASIX [Concomitant]
     Dosage: 2 DF, UNK
     Route: 048

REACTIONS (5)
  - Gait disturbance [Recovered/Resolved]
  - Dyspnoea [Recovered/Resolved]
  - Pyrexia [Unknown]
  - Nausea [Recovered/Resolved]
  - Vomiting [Recovered/Resolved]
